FAERS Safety Report 21008750 (Version 2)
Quarter: 2022Q3

REPORT INFORMATION
  Report Type: Spontaneous
  Country: US (occurrence: US)
  Receive Date: 20220627
  Receipt Date: 20220726
  Transmission Date: 20221027
  Serious: Yes (Other)
  Sender: FDA-Public Use
  Company Number: US-BRISTOL-MYERS SQUIBB COMPANY-2022-063275

PATIENT
  Age: 67 Year
  Sex: Male

DRUGS (1)
  1. REVLIMID [Suspect]
     Active Substance: LENALIDOMIDE
     Indication: Plasma cell myeloma
     Dosage: FREQUENCY CYCLE: FOR 21 DAYS ON, THEN 7 DAYS OFF
     Route: 048
     Dates: start: 20210209

REACTIONS (2)
  - Hypoaesthesia [Unknown]
  - Neuropathy peripheral [Unknown]
